FAERS Safety Report 6967520-7 (Version None)
Quarter: 2010Q3

REPORT INFORMATION
  Report Type: 
  Country: None (occurrence: None)
  Receive Date: 20100907
  Receipt Date: 20100826
  Transmission Date: 20110219
  Serious: Yes (Hospitalization, Disabling)
  Sender: FDA-Public Use
  Company Number: JP-ASTRAZENECA-2010SE40298

PATIENT
  Age: 78 Year
  Sex: Female

DRUGS (4)
  1. IRESSA [Suspect]
     Indication: NON-SMALL CELL LUNG CANCER
     Route: 048
     Dates: start: 20100629, end: 20100803
  2. DOGMATYL [Concomitant]
     Route: 048
     Dates: end: 20100803
  3. TAGAMET [Concomitant]
     Route: 048
     Dates: end: 20100803
  4. METHYCOBAL [Concomitant]
     Route: 048
     Dates: end: 20100803

REACTIONS (2)
  - HEPATIC FUNCTION ABNORMAL [None]
  - RASH [None]
